FAERS Safety Report 10191381 (Version 2)
Quarter: 2014Q2

REPORT INFORMATION
  Report Type: Spontaneous
  Country: GB (occurrence: GB)
  Receive Date: 20140523
  Receipt Date: 20140530
  Transmission Date: 20141212
  Serious: Yes (Hospitalization)
  Sender: FDA-Public Use
  Company Number: GB-PFIZER INC-2014135763

PATIENT
  Age: 51 Year
  Sex: Female

DRUGS (8)
  1. SULFASALAZINE [Suspect]
     Indication: RHEUMATOID ARTHRITIS
     Dosage: 500 MG, 1X/DAY, FIRST WEEK EVERY MORNING
     Route: 048
     Dates: start: 20140326
  2. SULFASALAZINE [Suspect]
     Dosage: 500 MG, 2X/DAY SECOND WEEK
     Route: 048
  3. SULFASALAZINE [Suspect]
     Dosage: THIRD WEEK. 1G IN MORNING, 500MG AT NIGHT.
     Route: 048
  4. SULFASALAZINE [Suspect]
     Dosage: 1 G, 2X/DAY FOURTH WEEK.
     Route: 048
     Dates: end: 20140418
  5. CO-CODAMOL [Concomitant]
     Dosage: 2 DF, 30/500MG. FOUR TIMES DAILY WHEN REQUIRED.
     Route: 048
     Dates: start: 2011
  6. NAPROXEN [Concomitant]
     Dosage: 500 MG, 2X/DAY
     Route: 048
     Dates: start: 201308
  7. LEVOTHYROXINE [Concomitant]
     Dosage: 50 UG, 1X/DAY
     Route: 048
     Dates: start: 2004
  8. OMEPRAZOLE [Concomitant]
     Dosage: 20 MG, 1X/DAY
     Route: 048
     Dates: start: 201308

REACTIONS (6)
  - Drug reaction with eosinophilia and systemic symptoms [Recovering/Resolving]
  - Lymphadenopathy [Recovering/Resolving]
  - Rash maculo-papular [Recovering/Resolving]
  - Malaise [Recovering/Resolving]
  - Pyrexia [Recovering/Resolving]
  - Liver function test abnormal [Recovering/Resolving]
